FAERS Safety Report 5095654-3 (Version None)
Quarter: 2006Q3

REPORT INFORMATION
  Report Type: 
  Country: None (occurrence: None)
  Receive Date: 20060731
  Receipt Date: 20060425
  Transmission Date: 20061208
  Serious: No
  Sender: FDA-Public Use
  Company Number: 2006PV012734

PATIENT
  Age: 47 Year
  Sex: Female
  Weight: 134.2647 kg

DRUGS (6)
  1. BYETTA [Suspect]
     Indication: DIABETES MELLITUS NON-INSULIN-DEPENDENT
     Dosage: 5 MCG; BID; SC, SEE IMAGE
     Route: 058
     Dates: start: 20060329
  2. GLUCOPHAGE [Concomitant]
  3. AMARYL [Concomitant]
  4. CARDURA [Concomitant]
  5. BENICAR [Concomitant]
  6. ZOCOR ^MERCK FROSST^ [Concomitant]

REACTIONS (4)
  - DEPRESSION [None]
  - FATIGUE [None]
  - IRRITABILITY [None]
  - MOOD SWINGS [None]
